FAERS Safety Report 17468795 (Version 2)
Quarter: 2020Q1

REPORT INFORMATION
  Report Type: Report from Study
  Country: US (occurrence: US)
  Receive Date: 20200227
  Receipt Date: 20200319
  Transmission Date: 20200409
  Serious: Yes (Other)
  Sender: FDA-Public Use
  Company Number: US-CLOVIS ONCOLOGY-CLO-2020-000357

PATIENT
  Age: 58 Year
  Sex: Female

DRUGS (2)
  1. RUBRACA [Suspect]
     Active Substance: RUCAPARIB CAMSYLATE
     Indication: OVARIAN CANCER
     Dosage: 600 MG, BID
     Route: 048
     Dates: start: 20200213
  2. ZOFRAN [Concomitant]
     Active Substance: ONDANSETRON HYDROCHLORIDE
     Indication: PRODUCT USED FOR UNKNOWN INDICATION
     Dosage: 8 MG, TID PRN
     Route: 048

REACTIONS (10)
  - Flatulence [Unknown]
  - Constipation [Unknown]
  - Neuropathy peripheral [Unknown]
  - Dry mouth [Unknown]
  - Fatigue [Unknown]
  - Gait disturbance [Unknown]
  - Abdominal pain upper [Unknown]
  - Back pain [Unknown]
  - Balance disorder [Unknown]
  - Nasopharyngitis [Unknown]

NARRATIVE: CASE EVENT DATE: 202002
